FAERS Safety Report 8814581 (Version 2)
Quarter: 2013Q1

REPORT INFORMATION
  Report Type: Spontaneous
  Country: US (occurrence: None)
  Receive Date: 20120926
  Receipt Date: 20121217
  Transmission Date: 20140127
  Serious: Yes (Other)
  Sender: FDA-Public Use
  Company Number: 2012GMK003701

PATIENT
  Age: 13 Year
  Sex: Male

DRUGS (1)
  1. OXCARBAZEPINE [Suspect]
     Indication: CONVULSION
     Route: 048
     Dates: start: 201202, end: 20120912

REACTIONS (2)
  - Convulsion [None]
  - Drug ineffective [None]
